FAERS Safety Report 24289294 (Version 1)
Quarter: 2024Q3

REPORT INFORMATION
  Report Type: Spontaneous
  Country: NL (occurrence: NL)
  Receive Date: 20240906
  Receipt Date: 20240906
  Transmission Date: 20241017
  Serious: Yes (Other)
  Sender: AUROBINDO
  Company Number: NL-LRB-00999893

PATIENT
  Age: 54 Year
  Sex: Male
  Weight: 77 kg

DRUGS (5)
  1. NAPROXEN [Suspect]
     Active Substance: NAPROXEN
     Indication: Back pain
     Dosage: 2X A DAY 1 PIECE
     Route: 065
     Dates: start: 20240805, end: 20240816
  2. ATORVASTATIN [Concomitant]
     Active Substance: ATORVASTATIN
     Indication: Product used for unknown indication
     Dosage: 10 MILLIGRAM
     Route: 065
  3. Insuline aspart sanofi [Concomitant]
     Indication: Product used for unknown indication
     Dosage: 100 UNITS/ML (UNITS PER MILLILITER)
     Route: 065
  4. PERINDOPRIL [Concomitant]
     Active Substance: PERINDOPRIL
     Indication: Product used for unknown indication
     Dosage: 4 MILLIGRAM
     Route: 065
  5. ACETAMINOPHEN [Concomitant]
     Active Substance: ACETAMINOPHEN
     Indication: Product used for unknown indication
     Dosage: MELTING TABLET, 500 MG (MILLIGRAM)
     Route: 065

REACTIONS (3)
  - Epilepsy [Recovered/Resolved]
  - Blood glucose decreased [Recovered/Resolved]
  - Amnesia [Recovered/Resolved]
